FAERS Safety Report 4999698-9 (Version None)
Quarter: 2006Q2

REPORT INFORMATION
  Report Type: 
  Country: None (occurrence: None)
  Receive Date: 20060511
  Receipt Date: 20060504
  Transmission Date: 20061013
  Serious: Yes (Other)
  Sender: FDA-Public Use
  Company Number: US-JNJFOC-20060501248

PATIENT
  Sex: Female
  Weight: 56.7 kg

DRUGS (14)
  1. REMICADE [Suspect]
     Indication: RHEUMATOID ARTHRITIS
     Route: 042
  2. ASPIRIN [Concomitant]
  3. FOLIC ACID [Concomitant]
  4. FOSAMAX [Concomitant]
  5. LEUCOVORIN [Concomitant]
  6. LEVOTHROID [Concomitant]
  7. METHOTREXATE [Concomitant]
  8. TRAZODONE HCL [Concomitant]
  9. VITAMIN B6 [Concomitant]
  10. VITAMIN B6 [Concomitant]
  11. VITAMIN B6 [Concomitant]
  12. VITAMIN B6 [Concomitant]
  13. VITAMIN B6 [Concomitant]
  14. VIACTIV [Concomitant]

REACTIONS (2)
  - BASAL CELL CARCINOMA [None]
  - SQUAMOUS CELL CARCINOMA [None]
